FAERS Safety Report 9575597 (Version 1)
Quarter: 2013Q4

REPORT INFORMATION
  Report Type: Spontaneous
  Country: US (occurrence: US)
  Receive Date: 20131001
  Receipt Date: 20131001
  Transmission Date: 20140711
  Serious: No
  Sender: FDA-Public Use
  Company Number: US-AMGEN-USASP2012083807

PATIENT
  Age: 54 Year
  Sex: Male
  Weight: 63.49 kg

DRUGS (5)
  1. ENBREL [Suspect]
     Indication: PSORIASIS
     Dosage: 50 MG, QWK
     Route: 058
  2. PROAIR HFA [Concomitant]
     Dosage: UNK
  3. ACIPHEX [Concomitant]
     Dosage: 20 MG, UNK
  4. VYTORIN [Concomitant]
     Dosage: 10-20 MG, UNK
  5. EXCEDRIN                           /00110301/ [Concomitant]
     Dosage: UNK

REACTIONS (2)
  - Agitation [Unknown]
  - Upper respiratory tract infection [Unknown]
